FAERS Safety Report 5210046-1 (Version None)
Quarter: 2006Q4

REPORT INFORMATION
  Report Type: 
  Country: None (occurrence: None)
  Receive Date: 20061127
  Receipt Date: 20060418
  Transmission Date: 20070319
  Serious: Yes (Hospitalization, Other)
  Sender: FDA-Public Use
  Company Number: 2006BH008320

PATIENT
  Age: 63 Year
  Sex: Female

DRUGS (14)
  1. DIANEAL [Suspect]
     Indication: RENAL FAILURE CHRONIC
     Dosage: 6 L;IP
  2. LANTUS [Concomitant]
  3. AMIODARONE HCL [Concomitant]
  4. KEFLEX [Concomitant]
  5. POTASSIUM CHLORIDE [Concomitant]
  6. MEGACE [Concomitant]
  7. ZINC SULFATE [Concomitant]
  8. ARGINAID [Concomitant]
  9. CELEXA [Concomitant]
  10. ULTRAM [Concomitant]
  11. TYLENOL [Concomitant]
  12. PROCIT [Concomitant]
  13. FENTANYL [Concomitant]
  14. OMEPRAZOLE [Concomitant]

REACTIONS (2)
  - PERITONITIS BACTERIAL [None]
  - STAPHYLOCOCCAL INFECTION [None]
